FAERS Safety Report 12559485 (Version 1)
Quarter: 2016Q3

REPORT INFORMATION
  Report Type: Spontaneous
  Country: US (occurrence: US)
  Receive Date: 20160715
  Receipt Date: 20160715
  Transmission Date: 20161109
  Serious: No
  Sender: FDA-Public Use
  Company Number: US-PFIZER INC-2016328409

PATIENT
  Age: 79 Year
  Sex: Male
  Weight: 82 kg

DRUGS (1)
  1. LATANOPROST. [Suspect]
     Active Substance: LATANOPROST
     Indication: PROPHYLAXIS
     Dosage: UNK
     Dates: start: 2016, end: 2016

REACTIONS (2)
  - Burning sensation [Recovered/Resolved]
  - Product substitution issue [Unknown]

NARRATIVE: CASE EVENT DATE: 2016
